FAERS Safety Report 14596352 (Version 4)
Quarter: 2019Q1

REPORT INFORMATION
  Report Type: Spontaneous
  Country: PT (occurrence: PT)
  Receive Date: 20180303
  Receipt Date: 20190302
  Transmission Date: 20190417
  Serious: Yes (Other)
  Sender: FDA-Public Use
  Company Number: PT-AUROBINDO-AUR-APL-2018-010792

PATIENT

DRUGS (8)
  1. RISIDON [Concomitant]
     Active Substance: METFORMIN HYDROCHLORIDE
     Indication: GLUCOSE TOLERANCE IMPAIRED
     Dosage: 1 DF, QD AT BREAKFAST (FOR SEVERAL YEARS)
     Route: 048
  2. CLARITHROMYCIN 500 MG MODIFIED RELEASE TABLETS [Suspect]
     Active Substance: CLARITHROMYCIN
     Indication: TOOTH INFECTION
     Dosage: UNK
     Route: 048
     Dates: start: 20180206
  3. ALFUZOSIN [Interacting]
     Active Substance: ALFUZOSIN
     Indication: BENIGN PROSTATIC HYPERPLASIA
     Dosage: UNK
     Route: 048
  4. ALFUZOSIN [Interacting]
     Active Substance: ALFUZOSIN
     Dosage: 1 DOSAGE FORM (1 DF, PM)
     Route: 048
     Dates: end: 20180207
  5. VISACOR [Concomitant]
     Active Substance: ROSUVASTATIN CALCIUM
     Indication: DYSLIPIDAEMIA
     Dosage: FOR SEVERAL YEARS
     Route: 065
  6. KLACID [Interacting]
     Active Substance: CLARITHROMYCIN
     Indication: TOOTH INFECTION
     Dosage: 1 DOSAGE FORM, ONCE A DAY
     Route: 048
     Dates: start: 20180206
  7. OLMETEC PLUS H [Concomitant]
     Indication: PRODUCT USED FOR UNKNOWN INDICATION
     Dosage: UNK
     Route: 065
  8. NEBILET [Concomitant]
     Active Substance: NEBIVOLOL
     Indication: HEART RATE INCREASED
     Dosage: FOR SEVERAL YEARS
     Route: 048

REACTIONS (3)
  - Blood pressure decreased [Recovered/Resolved]
  - Drug interaction [Recovered/Resolved]
  - Heart rate decreased [Recovered/Resolved]

NARRATIVE: CASE EVENT DATE: 20180207
